FAERS Safety Report 7200152-4 (Version None)
Quarter: 2010Q4

REPORT INFORMATION
  Report Type: 
  Country: None (occurrence: None)
  Receive Date: 20101228
  Receipt Date: 20101228
  Transmission Date: 20110411
  Serious: Yes (Other)
  Sender: FDA-Public Use
  Company Number: ES-JNJFOC-20101207285

PATIENT
  Age: 55 Year
  Sex: Female

DRUGS (6)
  1. TOPAMAX [Suspect]
     Indication: MIGRAINE PROPHYLAXIS
     Route: 048
  2. TERTENSIF [Concomitant]
     Indication: ILL-DEFINED DISORDER
  3. SYMBICORT [Concomitant]
     Indication: ILL-DEFINED DISORDER
  4. SINGULAIR [Concomitant]
     Indication: ILL-DEFINED DISORDER
  5. CANDESARTAN CILEXETIL AND HYDROCHLOROTHIAZIDE [Concomitant]
     Indication: ILL-DEFINED DISORDER
  6. EMEPROTON [Concomitant]
     Indication: ILL-DEFINED DISORDER

REACTIONS (3)
  - INJURY [None]
  - LUMBAR VERTEBRAL FRACTURE [None]
  - OSTEOPOROSIS [None]
